FAERS Safety Report 6418206-9 (Version None)
Quarter: 2009Q4

REPORT INFORMATION
  Report Type: 
  Country: None (occurrence: None)
  Receive Date: 20091028
  Receipt Date: 20091019
  Transmission Date: 20100525
  Serious: Yes (Other)
  Sender: FDA-Public Use
  Company Number: US-CELGENEUS-163-20785-09101548

PATIENT
  Sex: Female

DRUGS (3)
  1. THALOMID [Suspect]
     Route: 048
     Dates: start: 20081001
  2. THALOMID [Suspect]
     Dosage: 100-600MG
     Route: 048
     Dates: start: 20070501, end: 20070101
  3. CELEBREX [Concomitant]
     Indication: DRUG USE FOR UNKNOWN INDICATION
     Route: 065

REACTIONS (1)
  - PREGNANCY [None]
